FAERS Safety Report 6768711-0 (Version None)
Quarter: 2010Q2

REPORT INFORMATION
  Report Type: 
  Country: None (occurrence: None)
  Receive Date: 20100614
  Receipt Date: 20100602
  Transmission Date: 20101027
  Serious: Yes (Hospitalization)
  Sender: FDA-Public Use
  Company Number: JP-AMGEN-QUU406373

PATIENT
  Age: 56 Year
  Sex: Male

DRUGS (6)
  1. SENSIPAR [Suspect]
     Indication: HYPERPARATHYROIDISM SECONDARY
     Route: 048
     Dates: start: 20100304, end: 20100330
  2. DARBEPOETIN ALFA [Concomitant]
     Route: 042
     Dates: start: 20080701
  3. TANKARU [Concomitant]
     Route: 048
     Dates: start: 20060501
  4. RENAGEL [Concomitant]
     Route: 048
     Dates: start: 20070301
  5. ADALAT CC [Concomitant]
     Route: 048
     Dates: start: 20060801
  6. HEPARIN [Concomitant]

REACTIONS (4)
  - ABDOMINAL PAIN LOWER [None]
  - ANAEMIA [None]
  - EOSINOPHIL COUNT INCREASED [None]
  - RENAL HAEMORRHAGE [None]
